FAERS Safety Report 11060820 (Version 3)
Quarter: 2015Q2

REPORT INFORMATION
  Report Type: Spontaneous
  Country: JP (occurrence: JP)
  Receive Date: 20150423
  Receipt Date: 20150517
  Transmission Date: 20150821
  Serious: Yes (Life-Threatening, Other)
  Sender: FDA-Public Use
  Company Number: JP-AMGEN-JPNSP2014103526

PATIENT
  Age: 63 Year
  Sex: Male

DRUGS (2)
  1. RHEUMATREX [Suspect]
     Active Substance: METHOTREXATE SODIUM
     Indication: PRODUCT USED FOR UNKNOWN INDICATION
     Dosage: UNK
     Route: 048
  2. ENBREL [Suspect]
     Active Substance: ETANERCEPT
     Indication: PRODUCT USED FOR UNKNOWN INDICATION
     Dosage: UNK
     Route: 058

REACTIONS (1)
  - Gastric cancer [Unknown]
